FAERS Safety Report 8911651 (Version 3)
Quarter: 2013Q1

REPORT INFORMATION
  Report Type: Spontaneous
  Country: JP (occurrence: JP)
  Receive Date: 20121116
  Receipt Date: 20130111
  Transmission Date: 20140127
  Serious: Yes (Death, Hospitalization, Other)
  Sender: FDA-Public Use
  Company Number: JP-PFIZER INC-2012286933

PATIENT
  Age: 40 Year
  Sex: Male

DRUGS (12)
  1. LYRICA [Suspect]
     Indication: PAIN IN EXTREMITY
     Dosage: 75 MG, 1X/DAY
     Route: 048
     Dates: start: 20121005, end: 20121007
  2. LAC B [Concomitant]
     Indication: GASTROINTESTINAL DISORDER
     Dosage: 1 G, 3X/DAY
     Route: 048
     Dates: start: 20050225
  3. MUCOSTA [Concomitant]
     Indication: PROPHYLAXIS
     Dosage: 100 MG, 3X/DAY
     Route: 048
     Dates: start: 200112
  4. TEGRETOL [Concomitant]
     Indication: PAIN IN EXTREMITY
     Dosage: 100 MG, 2X/DAY
     Route: 048
     Dates: start: 200112
  5. MEXITIL [Concomitant]
     Indication: PAIN IN EXTREMITY
     Dosage: 100 MG, 3X/DAY
     Route: 048
     Dates: start: 20021113
  6. SILECE [Concomitant]
     Indication: INSOMNIA
     Dosage: 1 MG, 1X/DAY
     Route: 048
     Dates: start: 20030108
  7. HALCION [Concomitant]
     Indication: INSOMNIA
     Dosage: 0.25 MG, 1X/DAY
     Route: 048
     Dates: start: 20060428
  8. MYSLEE [Concomitant]
     Indication: INSOMNIA
     Dosage: 10 MG, 1X/DAY
     Route: 048
     Dates: start: 20030226
  9. NEXIUM [Concomitant]
     Indication: PROPHYLAXIS
     Dosage: 20 MG, 1X/DAY
     Route: 048
     Dates: start: 20121005
  10. PENTAGIN [Concomitant]
     Indication: PAIN IN EXTREMITY
     Dosage: 25 MG, 2X/DAY
     Route: 048
     Dates: start: 20021009
  11. MOHRUS [Concomitant]
     Indication: PAIN IN EXTREMITY
     Dosage: 1 SHEET PER DAY
     Route: 062
     Dates: start: 20040416
  12. CAPSAICIN [Concomitant]
     Indication: PAIN IN EXTREMITY
     Dosage: UNK
     Route: 062
     Dates: start: 20061222

REACTIONS (4)
  - Cardiac failure acute [Fatal]
  - Cardiac arrest [Fatal]
  - Dizziness [Unknown]
  - Vomiting [Unknown]
